FAERS Safety Report 23425206 (Version 1)
Quarter: 2024Q1

REPORT INFORMATION
  Report Type: Spontaneous
  Country: US (occurrence: US)
  Receive Date: 20240121
  Receipt Date: 20240121
  Transmission Date: 20240410
  Serious: Yes (Hospitalization, Other)
  Sender: FDA-Public Use
  Company Number: US-NOVOPROD-1164425

PATIENT
  Age: 59 Year
  Sex: Female

DRUGS (1)
  1. TRESIBA [Suspect]
     Active Substance: INSULIN DEGLUDEC
     Indication: Type 3 diabetes mellitus
     Dosage: SLIDING SCALE
     Route: 058

REACTIONS (11)
  - Tibia fracture [Recovering/Resolving]
  - Fall [Recovered/Resolved]
  - Systemic infection [Recovering/Resolving]
  - Dehydration [Recovered/Resolved]
  - Haemoglobin decreased [Recovered/Resolved]
  - Bladder disorder [Unknown]
  - Staphylococcal infection [Recovered/Resolved]
  - Diarrhoea [Recovered/Resolved]
  - Blood glucose increased [Recovered/Resolved]
  - Eczema [Recovering/Resolving]
  - Skin ulcer [Recovering/Resolving]

NARRATIVE: CASE EVENT DATE: 20230101
